FAERS Safety Report 5111631-8 (Version None)
Quarter: 2006Q3

REPORT INFORMATION
  Report Type: 
  Country: None (occurrence: None)
  Receive Date: 20060922
  Receipt Date: 20060911
  Transmission Date: 20061208
  Serious: Yes (Death, Hospitalization, Other)
  Sender: FDA-Public Use
  Company Number: JP-JNJFOC-20060805904

PATIENT
  Sex: Female
  Weight: 54 kg

DRUGS (19)
  1. REMICADE [Suspect]
     Route: 042
  2. REMICADE [Suspect]
     Route: 042
  3. REMICADE [Suspect]
     Indication: FISTULA
     Route: 042
  4. REMICADE [Suspect]
     Indication: CROHN'S DISEASE
     Route: 042
  5. ARODATE [Concomitant]
     Route: 042
  6. CEFMETAZON [Concomitant]
     Route: 042
  7. PENTASA [Concomitant]
     Indication: CROHN'S DISEASE
     Route: 048
  8. LASIX [Concomitant]
     Route: 048
  9. GASTER D [Concomitant]
     Route: 048
  10. EBRANTIL [Concomitant]
     Route: 048
  11. GANATON [Concomitant]
     Route: 048
  12. GASCON [Concomitant]
     Route: 048
  13. TOUGHMAC E [Concomitant]
     Route: 048
  14. ASPARA K [Concomitant]
     Route: 048
  15. ROCALTOROL [Concomitant]
     Route: 048
  16. GLAKAY [Concomitant]
     Route: 048
  17. CIPROFLOXACIN [Concomitant]
     Indication: CROHN'S DISEASE
     Route: 048
  18. ELCITONIN [Concomitant]
     Dosage: 20 ^UT^
     Route: 030
  19. PRODIF [Concomitant]
     Dosage: 'FOSFLUCONAZOLE^
     Route: 042

REACTIONS (11)
  - ADENOCARCINOMA [None]
  - ASTHENIA [None]
  - DEVICE RELATED INFECTION [None]
  - FALL [None]
  - HYPOAESTHESIA [None]
  - HYPOKALAEMIA [None]
  - INTRACARDIAC THROMBUS [None]
  - MALIGNANT ASCITES [None]
  - PERIPHERAL COLDNESS [None]
  - SPINAL COMPRESSION FRACTURE [None]
  - VENA CAVA THROMBOSIS [None]
